FAERS Safety Report 7078463-5 (Version None)
Quarter: 2010Q4

REPORT INFORMATION
  Report Type: 
  Country: None (occurrence: None)
  Receive Date: 20101102
  Receipt Date: 20101019
  Transmission Date: 20110411
  Serious: Yes (Other)
  Sender: FDA-Public Use
  Company Number: PHHY2010FR63419

PATIENT
  Age: 80 Year
  Sex: Female

DRUGS (4)
  1. RASILEZ [Suspect]
     Indication: HYPERTENSION
     Dosage: 150 MG DAILY
     Route: 048
     Dates: start: 20091116, end: 20091217
  2. RASILEZ [Suspect]
     Dosage: 300 MG DAILY
     Route: 048
     Dates: start: 20091217, end: 20100820
  3. DILTIAZEM [Concomitant]
     Dosage: 200 MG DAILY
     Dates: start: 20100419
  4. VALSARTAN  AND HYDROCHLOROTHIAZIDE [Concomitant]
     Dosage: 160/25 MG DAILY
     Dates: start: 20080101

REACTIONS (2)
  - ANAEMIA [None]
  - RENAL IMPAIRMENT [None]
